FAERS Safety Report 5284448-1 (Version None)
Quarter: 2007Q2

REPORT INFORMATION
  Report Type: 
  Country: None (occurrence: None)
  Receive Date: 20070403
  Receipt Date: 20070330
  Transmission Date: 20071010
  Serious: Yes (Hospitalization)
  Sender: FDA-Public Use
  Company Number: 2006UW07949

PATIENT
  Age: 427 Month
  Sex: Female
  Weight: 45.5 kg

DRUGS (6)
  1. SEROQUEL [Suspect]
     Indication: DEPRESSION
     Dosage: DOES NOT RECALL WHEN SHE STOPPED
     Route: 048
  2. RELACORE [Concomitant]
     Indication: WEIGHT CONTROL
     Dates: start: 20041101
  3. DEXATRIM [Concomitant]
     Indication: WEIGHT CONTROL
     Dates: start: 20041101
  4. PAXIL [Concomitant]
  5. PROZAC [Concomitant]
  6. AMITRIPTYLINE HCL [Concomitant]

REACTIONS (3)
  - DIABETES MELLITUS [None]
  - OVERDOSE [None]
  - WEIGHT INCREASED [None]
